FAERS Safety Report 7108891-0 (Version None)
Quarter: 2010Q4

REPORT INFORMATION
  Report Type: 
  Country: None (occurrence: None)
  Receive Date: 20101117
  Receipt Date: 20100929
  Transmission Date: 20110411
  Serious: No
  Sender: FDA-Public Use
  Company Number: US-BAYER-201021897BCC

PATIENT
  Age: 55 Year
  Sex: Female
  Weight: 96 kg

DRUGS (8)
  1. ALEVE (CAPLET) [Suspect]
     Indication: PRODUCT USED FOR UNKNOWN INDICATION
     Dosage: UNIT DOSE: 220 MG
     Route: 048
     Dates: start: 20100801, end: 20100901
  2. ALEVE (CAPLET) [Suspect]
     Dosage: TOTAL DAILY DOSE: 880 MG  UNIT DOSE: 220 MG
     Route: 048
     Dates: start: 20100901, end: 20100901
  3. BENICAR [Concomitant]
  4. WELLBUTRIN [Concomitant]
  5. CLONAZEPAM [Concomitant]
  6. SYNTHROID [Concomitant]
  7. AMOXAPINE [Concomitant]
  8. LOXAPINE [Concomitant]

REACTIONS (3)
  - ABDOMINAL PAIN UPPER [None]
  - REGURGITATION [None]
  - VOMITING [None]
